FAERS Safety Report 19949941 (Version 1)
Quarter: 2021Q4

REPORT INFORMATION
  Report Type: Spontaneous
  Country: US (occurrence: US)
  Receive Date: 20211013
  Receipt Date: 20211013
  Transmission Date: 20220303
  Serious: No
  Sender: FDA-Public Use
  Company Number: None

PATIENT
  Sex: Male

DRUGS (1)
  1. REGEN-COV [Suspect]
     Active Substance: CASIRIVIMAB\IMDEVIMAB
     Indication: COVID-19
     Dates: start: 20211012, end: 20211012

REACTIONS (5)
  - Gingival bleeding [None]
  - Gingival pain [None]
  - Oral pain [None]
  - Pain in jaw [None]
  - Feeling abnormal [None]

NARRATIVE: CASE EVENT DATE: 20211013
